FAERS Safety Report 10706399 (Version 1)
Quarter: 2015Q1

REPORT INFORMATION
  Report Type: Spontaneous
  Country: CH (occurrence: None)
  Receive Date: 20150109
  Receipt Date: 20150109
  Transmission Date: 20150721
  Serious: Yes (Hospitalization)
  Sender: FDA-Public Use
  Company Number: 20140834

PATIENT
  Age: 38 Year
  Sex: Female

DRUGS (14)
  1. VANCOMYCIN HYDROCHLORIDE (VANCOMYCIN HYDROCHLORIDE) [Suspect]
     Active Substance: VANCOMYCIN HYDROCHLORIDE
     Indication: PRODUCT USED FOR UNKNOWN INDICATION
     Route: 041
     Dates: start: 20130220, end: 20130304
  2. MIRCERA (PEGAZEREPOETIN ALFA, METHOXPOLYETHYLE [Concomitant]
  3. TAHOR [Concomitant]
     Active Substance: ATORVASTATIN CALCIUM
  4. RANIPLEX (RANITIDINE) [Concomitant]
  5. AMOXICILLIN. [Suspect]
     Active Substance: AMOXICILLIN
     Indication: PRODUCT USED FOR UNKNOWN INDICATION
     Dates: start: 20141111, end: 20141111
  6. PHOSPHONEUROS (MG GLYCEROPHOSPHATE ACIDE [Concomitant]
  7. SUREGESTONE (PROMEGESTONE) [Concomitant]
  8. UVEDOSE (COLECALCIFEROL) (100000 IU (INTERNATIONL UNIT, ORAL SOLUTION) (COLECALCIFEROL)) [Concomitant]
     Active Substance: CHOLECALCIFEROL
  9. RIVOTRIL [Concomitant]
     Active Substance: CLONAZEPAM
  10. VENOFER [Suspect]
     Active Substance: IRON SUCROSE
     Indication: PRODUCT USED FOR UNKNOWN INDICATION
     Dosage: ONE DOSAGE FORM.
     Dates: start: 20141013, end: 20141119
  11. CEFTRIAXONE SODIUM. [Suspect]
     Active Substance: CEFTRIAXONE SODIUM
     Indication: PRODUCT USED FOR UNKNOWN INDICATION
     Dates: start: 20141105, end: 20141119
  12. VANCOMYCIN HYDROCHLORIDE (VANCOMYCIN HYDROCHLORIDE) [Suspect]
     Active Substance: VANCOMYCIN HYDROCHLORIDE
     Indication: PRODUCT USED FOR UNKNOWN INDICATION
     Route: 041
     Dates: start: 20141105, end: 20141111
  13. EMLA (LIDOCAINE, PRILOCAINE) [Concomitant]
  14. CEFTRIAXONE SODIUM BASE [Suspect]
     Active Substance: CEFTRIAXONE SODIUM
     Indication: PRODUCT USED FOR UNKNOWN INDICATION
     Dates: start: 20130220, end: 20130304

REACTIONS (5)
  - Pancytopenia [None]
  - Rectal haemorrhage [None]
  - Agranulocytosis [None]
  - Granulocytes maturation arrest [None]
  - Bone marrow disorder [None]

NARRATIVE: CASE EVENT DATE: 20141119
